FAERS Safety Report 4396914-1 (Version None)
Quarter: 2004Q3

REPORT INFORMATION
  Report Type: 
  Country: None (occurrence: None)
  Receive Date: 20040708
  Receipt Date: 20040701
  Transmission Date: 20050211
  Serious: Yes (Life-Threatening, Hospitalization)
  Sender: FDA-Public Use
  Company Number: 2004PK01125

PATIENT
  Age: 68 Year
  Sex: Male
  Weight: 76 kg

DRUGS (9)
  1. METOPROLOL SUCCINATE [Suspect]
     Indication: HYPERTENSION
     Dosage: 95 MG QD PO   A FEW YEARS
     Route: 048
  2. ACTRAPHANE [Suspect]
     Indication: DIABETES MELLITUS
     Dosage: 28 IU DAILY SQ       A FEW YEARS
     Route: 058
  3. ACTRAPHANE HM [Suspect]
     Indication: DIABETES MELLITUS
     Dosage: 12 IU DAILY SQ
     Route: 058
  4. ARELIX ACE [Suspect]
     Indication: CORONARY ARTERY DISEASE
     Dosage: 1 DF DAILY PO
     Route: 048
     Dates: start: 20040101
  5. PROTAPHANE MC [Suspect]
     Indication: DIABETES MELLITUS
     Dosage: 10 IU DAILY SQ
     Route: 058
     Dates: end: 20040320
  6. ASPIRIN [Concomitant]
  7. ISCOVER [Concomitant]
  8. OMEPRAZOLE [Concomitant]
  9. SORTIS [Concomitant]

REACTIONS (5)
  - DRUG INTERACTION [None]
  - FALL [None]
  - HYPERHIDROSIS [None]
  - MEDICATION ERROR [None]
  - SHOCK HYPOGLYCAEMIC [None]
